FAERS Safety Report 6000245-3 (Version None)
Quarter: 2008Q4

REPORT INFORMATION
  Report Type: 
  Country: None (occurrence: None)
  Receive Date: 20081211
  Receipt Date: 20081202
  Transmission Date: 20090506
  Serious: Yes (Death, Hospitalization)
  Sender: FDA-Public Use
  Company Number: THQ2008A02164

PATIENT
  Age: 63 Year
  Sex: Male

DRUGS (1)
  1. ACTOS [Suspect]
     Indication: TYPE 2 DIABETES MELLITUS
     Dosage: 15 MG (15 MG, 1 IN 1 D) PER ORAL
     Route: 048
     Dates: start: 20050201, end: 20050101

REACTIONS (4)
  - CARDIAC FAILURE [None]
  - OEDEMA [None]
  - SUDDEN DEATH [None]
  - SWELLING [None]
